FAERS Safety Report 13348139 (Version 1)
Quarter: 2017Q1

REPORT INFORMATION
  Report Type: Spontaneous
  Country: US (occurrence: US)
  Receive Date: 20170318
  Receipt Date: 20170318
  Transmission Date: 20170428
  Serious: Yes (Hospitalization)
  Sender: FDA-Public Use
  Company Number: US-VERTEX PHARMACEUTICALS-2017-001528

PATIENT
  Age: 14 Year
  Sex: Male

DRUGS (6)
  1. SODIUM CHLORIDE. [Concomitant]
     Active Substance: SODIUM CHLORIDE
  2. PERTZYE [Concomitant]
     Active Substance: PANCRELIPASE AMYLASE\PANCRELIPASE LIPASE\PANCRELIPASE PROTEASE
  3. ORKAMBI [Suspect]
     Active Substance: IVACAFTOR\LUMACAFTOR
     Indication: CYSTIC FIBROSIS
     Dosage: 2 DF (200/ 125 MG EACH), BID
     Route: 048
     Dates: start: 20160303
  4. PULMOZYME [Concomitant]
     Active Substance: DORNASE ALFA
  5. TOBRAMYCIN. [Concomitant]
     Active Substance: TOBRAMYCIN
  6. COLISTIMETHATE [Concomitant]
     Active Substance: COLISTIMETHATE SODIUM

REACTIONS (1)
  - Infective pulmonary exacerbation of cystic fibrosis [Unknown]

NARRATIVE: CASE EVENT DATE: 201702
